FAERS Safety Report 6373352-3 (Version None)
Quarter: 2009Q3

REPORT INFORMATION
  Report Type: 
  Country: None (occurrence: None)
  Receive Date: 20090924
  Receipt Date: 20090401
  Transmission Date: 20100115
  Serious: No
  Sender: FDA-Public Use
  Company Number: US-ASTRAZENECA-2009UW08285

PATIENT
  Age: 55 Year
  Sex: Female
  Weight: 65.8 kg

DRUGS (3)
  1. SEROQUEL XR [Suspect]
     Indication: BIPOLAR DISORDER
     Route: 048
     Dates: start: 20081201
  2. XANAX [Concomitant]
  3. CALCIUM W/VITAMIN D NOS [Concomitant]

REACTIONS (7)
  - GINGIVAL BLEEDING [None]
  - HYPERTENSION [None]
  - ILL-DEFINED DISORDER [None]
  - LOOSE TOOTH [None]
  - OSTEOMALACIA [None]
  - VITAMIN D DECREASED [None]
  - WEIGHT INCREASED [None]
